FAERS Safety Report 8887667 (Version 1)
Quarter: 2012Q4

REPORT INFORMATION
  Report Type: 
  Country: US (occurrence: US)
  Receive Date: 20121106
  Receipt Date: 20121106
  Transmission Date: 20130627
  Serious: Yes (Other)
  Sender: FDA-Public Use
  Company Number: US-PFIZER INC-2012273016

PATIENT
  Age: 73 Year
  Sex: Female
  Weight: 52.61 kg

DRUGS (5)
  1. AZULFIDINE [Suspect]
     Indication: ARTHRITIS
     Dosage: 1500 mg (500mgx3), 2x/day
     Route: 048
     Dates: end: 201204
  2. CELEBREX [Suspect]
     Indication: ARTHRITIS
     Dosage: 200 mg, 1x/day
     Route: 048
     Dates: start: 20120409
  3. CITALOPRAM [Suspect]
     Indication: DEPRESSION
     Dosage: 20 mg, UNK
     Route: 048
  4. HYDROXYCHLOROQUINE [Concomitant]
     Dosage: 200 mg, 2x/day
  5. GABAPENTIN [Concomitant]
     Indication: SPINAL CORD DISORDER
     Dosage: 300 mg, 1x/day

REACTIONS (10)
  - Arthropathy [Unknown]
  - Choking [Unknown]
  - Anaemia [Unknown]
  - Dysphagia [Unknown]
  - Gait disturbance [Unknown]
  - Pain [Unknown]
  - Back pain [Unknown]
  - Body height decreased [Unknown]
  - Pharyngeal disorder [Unknown]
  - Drug ineffective [Unknown]
